FAERS Safety Report 9452478 (Version 2)
Quarter: 2013Q3

REPORT INFORMATION
  Report Type: Spontaneous
  Country: US (occurrence: US)
  Receive Date: 20130812
  Receipt Date: 20130819
  Transmission Date: 20140515
  Serious: No
  Sender: FDA-Public Use
  Company Number: US-009507513-1308USA000332

PATIENT
  Age: 70 Year
  Sex: Male

DRUGS (2)
  1. DULERA [Suspect]
     Indication: EMPHYSEMA
     Dosage: 100/5 MICROGRAM, ONE PUFF IN AM AND ONE PUFF IN THE PM
     Route: 055
     Dates: start: 2013
  2. PROAIR HFA [Concomitant]
     Dosage: UNK

REACTIONS (4)
  - Dyspnoea [Recovered/Resolved]
  - Product container issue [Unknown]
  - Incorrect dose administered by device [Unknown]
  - Product quality issue [Unknown]
